FAERS Safety Report 14695429 (Version 2)
Quarter: 2018Q1

REPORT INFORMATION
  Report Type: Spontaneous
  Country: CZ (occurrence: CZ)
  Receive Date: 20180329
  Receipt Date: 20180329
  Transmission Date: 20180509
  Serious: Yes (Other)
  Sender: FDA-Public Use
  Company Number: PHHY2018CZ048589

PATIENT
  Age: 56 Year
  Sex: Female
  Weight: 64 kg

DRUGS (2)
  1. LETROZOLE. [Suspect]
     Active Substance: LETROZOLE
     Indication: BREAST CANCER
     Dosage: UNK
     Route: 065
  2. PREDNISONE. [Suspect]
     Active Substance: PREDNISONE
     Indication: BREAST CANCER
     Dosage: 5 MG, QD
     Route: 065

REACTIONS (6)
  - Hyperparathyroidism secondary [Unknown]
  - Vitamin D abnormal [Unknown]
  - Spinal cord compression [Unknown]
  - Osteopenia [Unknown]
  - Blood alkaline phosphatase increased [Unknown]
  - Body height decreased [Unknown]
